FAERS Safety Report 5027251-X (Version None)
Quarter: 2006Q2

REPORT INFORMATION
  Report Type: 
  Country: None (occurrence: None)
  Receive Date: 20060609
  Receipt Date: 20060522
  Transmission Date: 20061013
  Serious: Yes (Hospitalization)
  Sender: FDA-Public Use
  Company Number: 226059

PATIENT
  Age: 39 Year
  Sex: Male

DRUGS (7)
  1. AVASTIN [Suspect]
     Indication: COLORECTAL CANCER
     Dosage: 7.5 MG/KG, INTRAVENOUS
     Route: 042
     Dates: start: 20060512
  2. CAPECITABINE (CAPECITABINE) [Suspect]
     Indication: COLORECTAL CANCER
     Dosage: 1000 MG/M2, BID, ORAL
     Route: 048
     Dates: start: 20060512
  3. OXALIPLATIN (OXALIPLATIN) [Suspect]
     Indication: COLORECTAL CANCER
     Dosage: 130 MG/M2, INTRAVENOUS
     Route: 042
     Dates: start: 20060512
  4. ERBITUX [Suspect]
     Indication: COLORECTAL CANCER
     Dosage: 400 MG/M2, INTRAVENOUS
     Route: 042
     Dates: start: 20060512
  5. ONDANSETRON HCL [Concomitant]
  6. FENTANYL TRANSDERMAL (FENTANYL CITRATE) [Concomitant]
  7. DICLOFENAC SODIUM [Concomitant]

REACTIONS (3)
  - ASTHENIA [None]
  - DYSKINESIA [None]
  - GRAND MAL CONVULSION [None]
